FAERS Safety Report 8785567 (Version 2)
Quarter: 2012Q4

REPORT INFORMATION
  Report Type: 
  Country: FR (occurrence: FR)
  Receive Date: 20120914
  Receipt Date: 20120914
  Transmission Date: 20130627
  Serious: Yes (Other)
  Sender: FDA-Public Use
  Company Number: FR-PFIZER INC-2012104581

PATIENT
  Age: 68 Year
  Sex: Female
  Weight: 58 kg

DRUGS (3)
  1. AMLODIPINE [Suspect]
     Indication: CORONARY ARTERY DISEASE
     Dosage: 5 mg, 1x/day
     Dates: start: 201111, end: 20120315
  2. TAHOR [Concomitant]
     Dosage: 10 mg, UNK
  3. PLAVIX [Concomitant]
     Dosage: UNK

REACTIONS (3)
  - Respiratory failure [Unknown]
  - Lung infection [Unknown]
  - Cough [Not Recovered/Not Resolved]
